FAERS Safety Report 9349398 (Version 2)
Quarter: 2014Q1

REPORT INFORMATION
  Report Type: Spontaneous
  Country: US (occurrence: US)
  Receive Date: 20130614
  Receipt Date: 20140327
  Transmission Date: 20141002
  Serious: Yes (Hospitalization, Other)
  Sender: FDA-Public Use
  Company Number: US-009507513-1306USA002526

PATIENT
  Sex: Female
  Weight: 74.38 kg

DRUGS (2)
  1. NUVARING [Suspect]
     Indication: CONTRACEPTION
     Dosage: UNK
     Route: 067
     Dates: start: 2010
  2. NUVARING [Suspect]
     Dosage: UNK
     Route: 067
     Dates: start: 201106

REACTIONS (11)
  - Pancreatitis [Not Recovered/Not Resolved]
  - Cholecystitis [Not Recovered/Not Resolved]
  - Pancreatectomy [Not Recovered/Not Resolved]
  - Cholecystectomy [Not Recovered/Not Resolved]
  - Transfusion [Not Recovered/Not Resolved]
  - Life support [Recovered/Resolved]
  - Diabetes mellitus [Not Recovered/Not Resolved]
  - Unintended pregnancy [Recovered/Resolved]
  - Weight increased [Not Recovered/Not Resolved]
  - Depression [Not Recovered/Not Resolved]
  - Anxiety [Not Recovered/Not Resolved]
